FAERS Safety Report 4969129-3 (Version None)
Quarter: 2006Q2

REPORT INFORMATION
  Report Type: 
  Country: None (occurrence: None)
  Receive Date: 20060411
  Receipt Date: 20050413
  Transmission Date: 20061013
  Serious: Yes (Hospitalization, Other)
  Sender: FDA-Public Use
  Company Number: US-BRISTOL-MYERS SQUIBB COMPANY-12931556

PATIENT
  Age: 33 Year
  Sex: Female
  Weight: 62 kg

DRUGS (10)
  1. CARBOPLATIN [Suspect]
     Indication: BREAST CANCER
     Route: 042
     Dates: start: 20050412, end: 20050412
  2. TAXOL [Concomitant]
     Indication: BREAST CANCER
     Route: 042
  3. HERCEPTIN [Concomitant]
     Indication: BREAST CANCER
     Route: 042
  4. KYTRIL [Concomitant]
     Indication: PREMEDICATION
     Route: 048
  5. BENADRYL [Concomitant]
  6. DECADRON [Concomitant]
  7. IRON [Concomitant]
     Dates: start: 20041123
  8. ZOFRAN [Concomitant]
     Dosage: EVERY 8 HOURS AS NEEDED
     Dates: start: 20050408
  9. COMPAZINE [Concomitant]
     Dosage: 5 MG EVERY 4 TO 6 HOURS AS NEEDED
     Dates: start: 20050201
  10. VICODIN [Concomitant]

REACTIONS (4)
  - ABDOMINAL PAIN [None]
  - CHEST DISCOMFORT [None]
  - DYSPNOEA [None]
  - RASH [None]
